FAERS Safety Report 6533995-0 (Version None)
Quarter: 2010Q1

REPORT INFORMATION
  Report Type: 
  Country: None (occurrence: None)
  Receive Date: 20100112
  Receipt Date: 20100106
  Transmission Date: 20100710
  Serious: Yes (Hospitalization, Other)
  Sender: FDA-Public Use
  Company Number: US-ELI_LILLY_AND_COMPANY-US200912000607

PATIENT
  Age: 35 Year
  Sex: Female
  Weight: 74.83 kg

DRUGS (2)
  1. BYETTA [Suspect]
     Indication: TYPE 2 DIABETES MELLITUS
     Dosage: 5 UG, 2/D
     Dates: start: 20080220, end: 20090120
  2. BYETTA [Suspect]
     Dosage: 10 UG, 2/D
     Dates: start: 20090120, end: 20090726

REACTIONS (5)
  - BLOOD CREATININE INCREASED [None]
  - BLOOD UREA INCREASED [None]
  - DIABETIC KETOACIDOSIS [None]
  - PANCREATITIS [None]
  - WEIGHT DECREASED [None]
